FAERS Safety Report 9768898 (Version 1)
Quarter: 2013Q3

REPORT INFORMATION
  Report Type: Spontaneous
  Country: US (occurrence: None)
  Receive Date: 20130909
  Receipt Date: 20130909
  Transmission Date: 20140515
  Serious: Yes (Other)
  Sender: FDA-Public Use
  Company Number: 151054KS

PATIENT
  Age: 47 Year
  Sex: Male
  Weight: 136.08 kg

DRUGS (5)
  1. IRINOTECAN [Suspect]
     Indication: COLON CANCER
     Dates: start: 20130828
  2. LEUCOVORIN CALCIUM FOR INJ. 50MG [Suspect]
     Indication: COLON CANCER
     Dates: start: 20130828
  3. BEVACIZUMAB [Concomitant]
  4. ATROPIN [Concomitant]
  5. DECUDNUM [Concomitant]

REACTIONS (3)
  - Pharyngeal oedema [None]
  - Swollen tongue [None]
  - Dyspnoea [None]
